FAERS Safety Report 19840792 (Version 3)
Quarter: 2022Q1

REPORT INFORMATION
  Report Type: Other
  Country: US (occurrence: US)
  Receive Date: 20210916
  Receipt Date: 20220109
  Transmission Date: 20220423
  Serious: Yes (Other)
  Sender: FDA-Public Use
  Company Number: US-HORMOSAN PHARMA GMBH-2021-17046

PATIENT
  Age: 36 Year
  Sex: Female

DRUGS (6)
  1. ABACAVIR AND LAMIVUDINE [Suspect]
     Active Substance: ABACAVIR SULFATE\LAMIVUDINE
     Indication: HIV infection
     Dosage: 1 DOSAGE FORM, QD (TAB/CAPS) (STOP DATE: 23-OCT-2020)
     Route: 048
  2. ABACAVIR AND LAMIVUDINE [Suspect]
     Active Substance: ABACAVIR SULFATE\LAMIVUDINE
     Dosage: 1 DOSAGE FORM, QD (TAB/CAPS)
     Route: 048
     Dates: start: 20210126, end: 20210223
  3. EVOTAZ [Suspect]
     Active Substance: ATAZANAVIR SULFATE\COBICISTAT
     Indication: HIV infection
     Dosage: 1 DOSAGE FORM, QD (TAB/CAPS)
     Route: 048
     Dates: end: 20210126
  4. ABACAVIR\LAMIVUDINE [Suspect]
     Active Substance: ABACAVIR\LAMIVUDINE
     Indication: HIV infection
     Dosage: 1 DOSAGE FORM, QD (TAB/CAPS)
     Route: 048
     Dates: start: 20201023, end: 20210126
  5. TIVICAY [Suspect]
     Active Substance: DOLUTEGRAVIR SODIUM
     Indication: HIV infection
     Dosage: 50 MILLIGRAM, QD
     Route: 048
     Dates: start: 20210126
  6. ABACAVIR AND LAMIVUDINE [Suspect]
     Active Substance: ABACAVIR SULFATE\LAMIVUDINE
     Indication: HIV infection
     Dosage: 1 DOSAGE FORM, QD (TAB/CAPS), MAH CIPLA
     Route: 048
     Dates: start: 20210223

REACTIONS (2)
  - Exposure during pregnancy [Unknown]
  - Placenta praevia [Unknown]

NARRATIVE: CASE EVENT DATE: 20210323
